FAERS Safety Report 12908337 (Version 6)
Quarter: 2018Q1

REPORT INFORMATION
  Report Type: Report from Study
  Country: TR (occurrence: TR)
  Receive Date: 20161103
  Receipt Date: 20180322
  Transmission Date: 20180508
  Serious: Yes (Death, Other)
  Sender: FDA-Public Use
  Company Number: PHHO2016TR015614

PATIENT
  Age: 49 Year
  Sex: Female
  Weight: 89 kg

DRUGS (4)
  1. CAPECITABINE. [Concomitant]
     Active Substance: CAPECITABINE
     Indication: BREAST CANCER METASTATIC
     Dosage: 3300 MG, UNK
     Route: 065
     Dates: start: 20161010, end: 20161020
  2. DOCETAXEL. [Suspect]
     Active Substance: DOCETAXEL
     Indication: BREAST CANCER METASTATIC
     Dosage: 125 MG, UNK
     Route: 065
     Dates: start: 20161010, end: 20161010
  3. COMPARATOR FULVESTRANT [Suspect]
     Active Substance: FULVESTRANT
     Indication: BREAST CANCER
     Dosage: 500 MG, UNK
     Route: 065
     Dates: start: 20160311
  4. LEE011 [Suspect]
     Active Substance: RIBOCICLIB
     Indication: BREAST CANCER
     Dosage: 600 MG, QD
     Route: 048
     Dates: start: 20160311, end: 20161004

REACTIONS (1)
  - Ventricular arrhythmia [Fatal]

NARRATIVE: CASE EVENT DATE: 20161020
